FAERS Safety Report 13189077 (Version 1)
Quarter: 2017Q1

REPORT INFORMATION
  Report Type: Spontaneous
  Country: US (occurrence: US)
  Receive Date: 20170203
  Receipt Date: 20170203
  Transmission Date: 20170428
  Serious: No
  Sender: FDA-Public Use
  Company Number: None

PATIENT
  Age: 70 Year
  Sex: Female
  Weight: 90.7 kg

DRUGS (1)
  1. RITUXAN [Suspect]
     Active Substance: RITUXIMAB
     Indication: CHRONIC LYMPHOCYTIC LEUKAEMIA
     Dosage: 731MG Q28D INTRAVENOUS
     Route: 042
     Dates: start: 20170130

REACTIONS (2)
  - Tremor [None]
  - Feeling cold [None]

NARRATIVE: CASE EVENT DATE: 20170130
